FAERS Safety Report 24110320 (Version 1)
Quarter: 2024Q3

REPORT INFORMATION
  Report Type: Spontaneous
  Country: US (occurrence: None)
  Receive Date: 20240717
  Receipt Date: 20240717
  Transmission Date: 20241017
  Serious: Yes (Life-Threatening, Other)
  Sender: Public
  Company Number: None

PATIENT
  Sex: Female

DRUGS (6)
  1. MOUNJARO [Suspect]
     Active Substance: TIRZEPATIDE
     Indication: Diabetes mellitus
     Dosage: OTHER QUANTITY : 1 INJECTION(S);?OTHER FREQUENCY : ONCE A WEEK;?
     Route: 058
     Dates: start: 20230601, end: 20240131
  2. METFORMIN [Concomitant]
     Active Substance: METFORMIN HYDROCHLORIDE
  3. FUROSEMIDE [Concomitant]
     Active Substance: FUROSEMIDE
  4. POTASSIUM [Concomitant]
     Active Substance: POTASSIUM
  5. EXCEDRIN [Concomitant]
     Active Substance: ACETAMINOPHEN\ASPIRIN\CAFFEINE
  6. ASPIRIN [Concomitant]
     Active Substance: ASPIRIN

REACTIONS (9)
  - Vomiting [None]
  - Abdominal pain upper [None]
  - Malaise [None]
  - Renal function test abnormal [None]
  - Pancreatitis [None]
  - Hepatitis [None]
  - Platelet count increased [None]
  - Weight decreased [None]
  - Near death experience [None]

NARRATIVE: CASE EVENT DATE: 20230601
